FAERS Safety Report 6768043-0 (Version None)
Quarter: 2010Q2

REPORT INFORMATION
  Report Type: 
  Country: None (occurrence: None)
  Receive Date: 20100614
  Receipt Date: 20100603
  Transmission Date: 20101027
  Serious: Yes (Congenital Anomaly)
  Sender: FDA-Public Use
  Company Number: B0658605B

PATIENT
  Sex: Male
  Weight: 2.2 kg

DRUGS (3)
  1. LAMICTAL [Suspect]
     Dosage: 75MG TWICE PER DAY
  2. TARDYFERON [Suspect]
  3. SPECIAFOLDINE [Suspect]

REACTIONS (13)
  - ABNORMAL PALMAR/PLANTAR CREASES [None]
  - ANOMALY OF EXTERNAL EAR CONGENITAL [None]
  - ATROPHY [None]
  - CARDIAC MALPOSITION [None]
  - CONGENITAL GENITAL MALFORMATION [None]
  - CONGENITAL MUSCULOSKELETAL ANOMALY [None]
  - DRUG EXPOSURE DURING PREGNANCY [None]
  - DUODENAL ATRESIA [None]
  - DYSMORPHISM [None]
  - FOETAL GROWTH RETARDATION [None]
  - HYPOSPADIAS [None]
  - MICROCEPHALY [None]
  - PILONIDAL CYST CONGENITAL [None]
